FAERS Safety Report 12432025 (Version 1)
Quarter: 2016Q2

REPORT INFORMATION
  Report Type: Spontaneous
  Country: US (occurrence: None)
  Receive Date: 20160602
  Receipt Date: 20160602
  Transmission Date: 20160815
  Serious: No
  Sender: FDA-Public Use
  Company Number: None

PATIENT
  Age: 22 Year
  Sex: Female
  Weight: 70.76 kg

DRUGS (1)
  1. MIRENA [Suspect]
     Active Substance: LEVONORGESTREL

REACTIONS (11)
  - Fatigue [None]
  - Abdominal distension [None]
  - Weight increased [None]
  - Weight loss poor [None]
  - Loss of libido [None]
  - Urinary tract infection [None]
  - Breast disorder [None]
  - Mood swings [None]
  - Nausea [None]
  - Dyspareunia [None]
  - Nipple disorder [None]

NARRATIVE: CASE EVENT DATE: 20160601
